FAERS Safety Report 4285480-7 (Version None)
Quarter: 2004Q1

REPORT INFORMATION
  Report Type: 
  Country: None (occurrence: None)
  Receive Date: 20040202
  Receipt Date: 20040121
  Transmission Date: 20041129
  Serious: Yes (Other)
  Sender: FDA-Public Use
  Company Number: KDL064543

PATIENT
  Age: 61 Year
  Sex: Male

DRUGS (2)
  1. PROCRIT [Suspect]
     Indication: RENAL FAILURE CHRONIC
  2. CYCLOSPORINE [Concomitant]

REACTIONS (4)
  - APLASIA PURE RED CELL [None]
  - HAEMOLYTIC ANAEMIA [None]
  - LEUKAEMIA [None]
  - WHOLE BLOOD TRANSFUSION [None]
